FAERS Safety Report 21423333 (Version 4)
Quarter: 2023Q1

REPORT INFORMATION
  Report Type: Spontaneous
  Country: DE (occurrence: DE)
  Receive Date: 20221007
  Receipt Date: 20230329
  Transmission Date: 20230417
  Serious: Yes (Hospitalization)
  Sender: FDA-Public Use
  Company Number: DE-BRISTOL-MYERS SQUIBB COMPANY-2022-114730

PATIENT
  Age: 73 Year
  Sex: Male
  Weight: 86 kg

DRUGS (6)
  1. YERVOY [Suspect]
     Active Substance: IPILIMUMAB
     Indication: Pleural mesothelioma
     Dosage: FOR EVERY 6 WEEKS
     Route: 042
     Dates: start: 20210827, end: 20210827
  2. YERVOY [Suspect]
     Active Substance: IPILIMUMAB
     Dates: start: 202108
  3. OPDIVO [Suspect]
     Active Substance: NIVOLUMAB
     Indication: Pleural mesothelioma
     Dates: start: 202108
  4. OPDIVO [Suspect]
     Active Substance: NIVOLUMAB
     Dates: start: 202111
  5. OPDIVO [Suspect]
     Active Substance: NIVOLUMAB
     Dosage: FOR EVERY THREE WEEKS
     Dates: start: 20210827, end: 20220321
  6. ASPIRIN [Concomitant]
     Active Substance: ASPIRIN
     Indication: Cerebrovascular accident
     Dates: start: 2011

REACTIONS (1)
  - Diarrhoea [Recovering/Resolving]
